FAERS Safety Report 7499698-3 (Version None)
Quarter: 2011Q2

REPORT INFORMATION
  Report Type: 
  Country: None (occurrence: None)
  Receive Date: 20110524
  Receipt Date: 20110519
  Transmission Date: 20111010
  Serious: Yes (Death)
  Sender: FDA-Public Use
  Company Number: VE-PFIZER INC-2011109254

PATIENT
  Age: 81 Year
  Sex: Female

DRUGS (2)
  1. CADUET [Suspect]
     Indication: HYPERTENSION
     Dosage: AMLODIPINE BESILATE 5 MG/ATORVASTATIN CALCIUM 20 MG, 1X/DAY
     Route: 048
     Dates: end: 20110101
  2. PLAVIX [Concomitant]
     Indication: PERIPHERAL VASCULAR DISORDER
     Dosage: 75 MG, 1X/DAY
     Route: 048

REACTIONS (1)
  - PANCREATIC NEOPLASM [None]
